FAERS Safety Report 5282146-1 (Version None)
Quarter: 2007Q1

REPORT INFORMATION
  Report Type: 
  Country: None (occurrence: None)
  Receive Date: 20070330
  Receipt Date: 20070321
  Transmission Date: 20070707
  Serious: Yes (Other)
  Sender: FDA-Public Use
  Company Number: US-PFIZER INC-2007004855

PATIENT
  Sex: Male
  Weight: 81.6 kg

DRUGS (11)
  1. CHANTIX [Suspect]
     Indication: SMOKING CESSATION THERAPY
  2. OPIOIDS [Suspect]
  3. MS CONTIN [Concomitant]
  4. ADVAIR DISKUS 100/50 [Concomitant]
  5. SPIRIVA [Concomitant]
  6. COMBIVENT [Concomitant]
  7. ALBUTEROL [Concomitant]
  8. TESTOSTERONE [Concomitant]
  9. PROTONIX [Concomitant]
  10. KLONOPIN [Concomitant]
  11. ZITHROMAX [Concomitant]

REACTIONS (7)
  - COLD SWEAT [None]
  - DIARRHOEA [None]
  - DRUG WITHDRAWAL SYNDROME [None]
  - FATIGUE [None]
  - FEELING ABNORMAL [None]
  - FEELING COLD [None]
  - VOMITING [None]
